FAERS Safety Report 4364871-X (Version None)
Quarter: 2004Q2

REPORT INFORMATION
  Report Type: 
  Country: None (occurrence: None)
  Receive Date: 20040514
  Receipt Date: 20030529
  Transmission Date: 20050107
  Serious: Yes (Hospitalization)
  Sender: FDA-Public Use
  Company Number: WAES 0305USA02892

PATIENT
  Age: 65 Year
  Sex: Male
  Weight: 68.4932 kg

DRUGS (6)
  1. CRIXIVAN [Suspect]
     Indication: HIV INFECTION
     Dosage: 400 MG/BID/PO
     Route: 048
     Dates: start: 20030430, end: 20030520
  2. BACTRIM [Concomitant]
  3. DIFLUCAN [Concomitant]
  4. FUZEON [Concomitant]
  5. KALETRA [Concomitant]
  6. VIREAD [Concomitant]

REACTIONS (1)
  - NEPHROLITHIASIS [None]
